FAERS Safety Report 14982913 (Version 1)
Quarter: 2018Q2

REPORT INFORMATION
  Report Type: Report from Study
  Country: FR (occurrence: FR)
  Receive Date: 20180607
  Receipt Date: 20180607
  Transmission Date: 20180711
  Serious: Yes (Death, Other)
  Sender: FDA-Public Use
  Company Number: FR-GLAXOSMITHKLINE-FR2018GSK098772

PATIENT
  Age: 61 Year
  Sex: Male

DRUGS (4)
  1. ZANAMIVIR [Suspect]
     Active Substance: ZANAMIVIR
     Dosage: 60 MG, Z
     Dates: start: 20180111, end: 20180115
  2. OSELTAMIVIR [Concomitant]
     Active Substance: OSELTAMIVIR
     Dosage: 30 MG, BID
     Route: 048
  3. IMIPENEME [Concomitant]
  4. TACROLIMUS. [Concomitant]
     Active Substance: TACROLIMUS

REACTIONS (4)
  - Acute respiratory distress syndrome [Unknown]
  - Therapeutic product ineffective [Unknown]
  - Respiratory tract infection [Unknown]
  - Death [Fatal]

NARRATIVE: CASE EVENT DATE: 20180115
